FAERS Safety Report 8318749-7 (Version None)
Quarter: 2012Q2

REPORT INFORMATION
  Report Type: 
  Country: None (occurrence: None)
  Receive Date: 20120427
  Receipt Date: 20090817
  Transmission Date: 20120825
  Serious: No
  Sender: FDA-Public Use
  Company Number: US-TEVA-2009009685

PATIENT
  Sex: Male
  Weight: 57.658 kg

DRUGS (5)
  1. OXYCODONE HCL AND ACETAMINOPHEN [Concomitant]
     Dates: start: 20080101
  2. NUVIGIL [Suspect]
     Indication: SLEEP APNOEA SYNDROME
     Dosage: 50 MILLIGRAM;
     Route: 048
     Dates: start: 20090701
  3. PROPECIA [Concomitant]
     Dates: start: 19900101
  4. NUVIGIL [Suspect]
     Dosage: 200 MILLIGRAM;
     Route: 048
     Dates: start: 20090701
  5. RITALIN [Concomitant]
     Dates: start: 20071101

REACTIONS (3)
  - SENSATION OF PRESSURE [None]
  - DRUG INEFFECTIVE [None]
  - HEADACHE [None]
